FAERS Safety Report 7937967-0 (Version None)
Quarter: 2011Q4

REPORT INFORMATION
  Report Type: 
  Country: None (occurrence: None)
  Receive Date: 20111123
  Receipt Date: 20111118
  Transmission Date: 20120403
  Serious: Yes (Hospitalization)
  Sender: FDA-Public Use
  Company Number: US-B.I. PHARMACEUTICALS,INC./RIDGEFIELD-2011-BP-22404BP

PATIENT
  Age: 57 Year
  Sex: Female
  Weight: 88.9 kg

DRUGS (3)
  1. AMIODARONE HCL [Concomitant]
     Dosage: 200 MG
  2. HEPARIN [Concomitant]
  3. PRADAXA [Suspect]
     Indication: ATRIAL FIBRILLATION
     Dosage: 300 MG
     Dates: start: 20110601, end: 20110817

REACTIONS (1)
  - HAEMORRHAGE [None]
